FAERS Safety Report 23314071 (Version 1)
Quarter: 2023Q4

REPORT INFORMATION
  Report Type: Report from Study
  Country: US (occurrence: US)
  Receive Date: 20231219
  Receipt Date: 20231219
  Transmission Date: 20240109
  Serious: Yes (Other)
  Sender: FDA-Public Use
  Company Number: US-ABBVIE-5546412

PATIENT
  Sex: Female
  Weight: 95.254 kg

DRUGS (1)
  1. RINVOQ [Suspect]
     Active Substance: UPADACITINIB
     Indication: Ankylosing spondylitis
     Dosage: 15 MILLIGRAM
     Route: 048
     Dates: start: 202102, end: 202309

REACTIONS (3)
  - Internal haemorrhage [Recovered/Resolved]
  - Muscle spasms [Recovered/Resolved]
  - Blood urine present [Recovered/Resolved]
